FAERS Safety Report 17020114 (Version 1)
Quarter: 2019Q4

REPORT INFORMATION
  Report Type: Spontaneous
  Country: US (occurrence: US)
  Receive Date: 20191005
  Receipt Date: 20191005
  Transmission Date: 20200122
  Serious: Yes (Hospitalization)
  Sender: FDA-Public Use
  Company Number: None

PATIENT
  Age: 45 Year
  Sex: Female
  Weight: 80.6 kg

DRUGS (4)
  1. DOXORUBICIN HYDROCHLORIDE. [Suspect]
     Active Substance: DOXORUBICIN HYDROCHLORIDE
     Dates: end: 20190722
  2. CARBOPLATIN. [Suspect]
     Active Substance: CARBOPLATIN
     Dates: end: 20190913
  3. CYCLOPHOSPHAMIDE. [Suspect]
     Active Substance: CYCLOPHOSPHAMIDE
     Dates: end: 20190722
  4. TAXOL [Suspect]
     Active Substance: PACLITAXEL
     Dates: end: 20190920

REACTIONS (9)
  - Gastroenteritis [None]
  - Cryptosporidiosis infection [None]
  - Heart rate increased [None]
  - Sepsis [None]
  - Leukopenia [None]
  - Staphylococcus test positive [None]
  - Asthenia [None]
  - Diarrhoea [None]
  - Febrile neutropenia [None]

NARRATIVE: CASE EVENT DATE: 20190928
